FAERS Safety Report 19797083 (Version 1)
Quarter: 2021Q3

REPORT INFORMATION
  Report Type: Spontaneous
  Country: US (occurrence: US)
  Receive Date: 20210903
  Receipt Date: 20210903
  Transmission Date: 20211014
  Serious: No
  Sender: FDA-Public Use
  Company Number: None

PATIENT
  Age: 33 Year
  Weight: 128.28 kg

DRUGS (2)
  1. CASIRIVIMAB. [Suspect]
     Active Substance: CASIRIVIMAB
     Indication: COVID-19
     Route: 042
     Dates: start: 20210804
  2. IMDEVIMAB. [Suspect]
     Active Substance: IMDEVIMAB

REACTIONS (3)
  - Back pain [None]
  - Infusion related reaction [None]
  - Blood pressure increased [None]

NARRATIVE: CASE EVENT DATE: 20210804
